FAERS Safety Report 7479453-0 (Version None)
Quarter: 2011Q2

REPORT INFORMATION
  Report Type: 
  Country: None (occurrence: None)
  Receive Date: 20110513
  Receipt Date: 20071019
  Transmission Date: 20111010
  Serious: Yes (Death, Hospitalization, Disabling)
  Sender: FDA-Public Use
  Company Number: US-BAYER-200714015BWH

PATIENT
  Age: 63 Year
  Sex: Male
  Weight: 47.347 kg

DRUGS (16)
  1. DOPAMINE HCL [Concomitant]
     Dosage: 5 MCG/KG/MIN UNK, UNK
     Route: 042
     Dates: start: 20030311, end: 20030311
  2. PLASMA [Concomitant]
     Dosage: 1 U, UNK
  3. TRASYLOL [Suspect]
     Indication: CARDIAC OPERATION
     Dosage: 2 ML, UNK
     Route: 042
     Dates: start: 20030311, end: 20030311
  4. TRASYLOL [Suspect]
     Indication: MITRAL VALVE REPLACEMENT
  5. TRASYLOL [Suspect]
     Indication: CARDIAC PSEUDOANEURYSM
  6. EPINEPHRINE [Concomitant]
     Dosage: 3 MCG/MIN UNK, UNK
     Route: 042
     Dates: start: 20030311, end: 20030311
  7. LIPITOR [Concomitant]
     Dosage: 20 MG, QD
     Route: 048
     Dates: start: 20000101
  8. TOPROL-XL [Concomitant]
     Dosage: 50 MG, QD
     Route: 048
     Dates: start: 20000101
  9. TRASYLOL [Suspect]
     Indication: MITRAL VALVE REPAIR
     Dosage: 198CC FOLLOWED BY 50CC/HOUR DRIP
  10. ACETYLSALICYLIC ACID SRT [Concomitant]
     Dosage: 81 MG, QD
     Route: 048
  11. RED BLOOD CELLS [Concomitant]
     Dosage: 2 U, UNK
  12. HYDROCHLOROTHIAZIDE [Concomitant]
     Dosage: 12.5 MG, QD
     Route: 048
     Dates: start: 20000101
  13. PLATELETS [Concomitant]
     Dosage: 2 U, UNK
  14. AMIODARONE HCL [Concomitant]
     Indication: VENTRICULAR FIBRILLATION
     Dosage: 1 MG/MIN UNK, UNK
     Route: 042
     Dates: start: 20030311, end: 20030313
  15. NITROGLYCERIN [Concomitant]
     Dosage: 10 MCG UNK, UNK
     Route: 042
     Dates: start: 20030311, end: 20030312
  16. PROTAMINE SULFATE [Concomitant]
     Dosage: 230 CC UNK, UNK
     Route: 042
     Dates: start: 20030311, end: 20030311

REACTIONS (10)
  - INJURY [None]
  - EMOTIONAL DISTRESS [None]
  - DEPRESSION [None]
  - DEATH [None]
  - ANXIETY [None]
  - FEAR [None]
  - UNEVALUABLE EVENT [None]
  - ANHEDONIA [None]
  - RENAL FAILURE [None]
  - PAIN [None]
